FAERS Safety Report 7500515-3 (Version None)
Quarter: 2011Q2

REPORT INFORMATION
  Report Type: 
  Country: None (occurrence: None)
  Receive Date: 20110524
  Receipt Date: 20110519
  Transmission Date: 20111010
  Serious: No
  Sender: FDA-Public Use
  Company Number: US-PFIZER INC-2011108632

PATIENT
  Sex: Female
  Weight: 70 kg

DRUGS (2)
  1. IBUPROFEN [Concomitant]
     Indication: PAIN
     Dosage: 400 MG, 2X/DAY
  2. DEPO-PROVERA [Suspect]
     Indication: CONTRACEPTION
     Dosage: UNK
     Dates: start: 20110101

REACTIONS (2)
  - DYSMENORRHOEA [None]
  - MENORRHAGIA [None]
